FAERS Safety Report 15534710 (Version 1)
Quarter: 2018Q4

REPORT INFORMATION
  Report Type: Report from Study
  Country: IL (occurrence: IL)
  Receive Date: 20181022
  Receipt Date: 20181022
  Transmission Date: 20190205
  Serious: Yes (Hospitalization)
  Sender: FDA-Public Use
  Company Number: IL-IPSEN BIOPHARMACEUTICALS, INC.-2018-05018

PATIENT
  Age: 66 Year
  Sex: Male
  Weight: 100.1 kg

DRUGS (10)
  1. INSULIN HUMALOG KWIKPEN [Concomitant]
     Route: 058
  2. FAMOTIDINE-TEVA [Concomitant]
     Route: 048
  3. MICROPIRIN [Concomitant]
     Active Substance: ASPIRIN
     Route: 048
  4. INSULIN TREGLUDEC [Concomitant]
     Route: 058
  5. COLCHICINE. [Concomitant]
     Active Substance: COLCHICINE
     Route: 048
  6. DUPLEX [Concomitant]
     Route: 048
  7. DYSPORT [Suspect]
     Active Substance: ABOBOTULINUMTOXINA
     Indication: NEUROGENIC BLADDER
     Dosage: NOT REPORTED
     Route: 043
     Dates: start: 20180312, end: 20180312
  8. TRULICITY PREFILLED PEN [Concomitant]
     Route: 058
  9. LAXADIN [Concomitant]
     Active Substance: BISACODYL
     Route: 048
  10. TOVIAZ [Concomitant]
     Active Substance: FESOTERODINE FUMARATE
     Route: 048

REACTIONS (2)
  - Dyspnoea [Not Recovered/Not Resolved]
  - Chest pain [Not Recovered/Not Resolved]

NARRATIVE: CASE EVENT DATE: 20180312
